FAERS Safety Report 26044142 (Version 1)
Quarter: 2025Q4

REPORT INFORMATION
  Report Type: Spontaneous
  Country: US (occurrence: US)
  Receive Date: 20251114
  Receipt Date: 20251114
  Transmission Date: 20260118
  Serious: No
  Sender: ALEXION PHARMACEUTICALS
  Company Number: US-AstraZeneca-CH-00986391AP

PATIENT
  Sex: Female

DRUGS (1)
  1. SYMBICORT [Suspect]
     Active Substance: BUDESONIDE\FORMOTEROL FUMARATE DIHYDRATE
     Indication: Asthma
     Dosage: 160 MICROGRAM

REACTIONS (8)
  - Intentional device misuse [Unknown]
  - Device use issue [Unknown]
  - Product dose omission issue [Unknown]
  - Multiple allergies [Unknown]
  - Drug delivery system issue [Unknown]
  - Incorrect dose administered by device [Unknown]
  - Dyspnoea [Unknown]
  - Device malfunction [Unknown]
